FAERS Safety Report 17673172 (Version 1)
Quarter: 2020Q2

REPORT INFORMATION
  Report Type: Spontaneous
  Country: US (occurrence: US)
  Receive Date: 20200415
  Receipt Date: 20200415
  Transmission Date: 20200713
  Serious: Yes (Death, Other)
  Sender: FDA-Public Use
  Company Number: US-FRESENIUS KABI-FK202003769

PATIENT
  Age: 64 Year
  Sex: Male

DRUGS (8)
  1. IPILIMUMAB [Suspect]
     Active Substance: IPILIMUMAB
     Indication: METASTATIC MALIGNANT MELANOMA
     Dosage: UNKNOWN
     Route: 065
  2. OMEPRAZOLE. [Concomitant]
     Active Substance: OMEPRAZOLE
     Indication: PRODUCT USED FOR UNKNOWN INDICATION
     Dosage: UNKNOWN
     Route: 065
  3. METHYLPREDNISOLONE (MANUFACTURER UNKNOWN) [Suspect]
     Active Substance: METHYLPREDNISOLONE
     Indication: METASTATIC MALIGNANT MELANOMA
     Dosage: UNKNOWN
     Route: 042
  4. INFLIXIMAB [Suspect]
     Active Substance: INFLIXIMAB
     Indication: METASTATIC MALIGNANT MELANOMA
     Dosage: UNKNOWN
     Route: 065
  5. NIVOLUMAB [Suspect]
     Active Substance: NIVOLUMAB
     Indication: METASTATIC MALIGNANT MELANOMA
     Dosage: UNKNOWN
     Route: 065
  6. LEVETIRACETAM. [Concomitant]
     Active Substance: LEVETIRACETAM
     Indication: PRODUCT USED FOR UNKNOWN INDICATION
     Dosage: UNKNOWN
     Route: 065
  7. DEXAMETHASONE. [Suspect]
     Active Substance: DEXAMETHASONE
     Indication: METASTATIC MALIGNANT MELANOMA
     Dosage: UNKNOWN
     Route: 048
  8. PREDNISONE. [Suspect]
     Active Substance: PREDNISONE
     Indication: METASTATIC MALIGNANT MELANOMA
     Dosage: UNKNOWN
     Route: 065

REACTIONS (6)
  - Multiple organ dysfunction syndrome [Unknown]
  - Leukocytosis [Unknown]
  - Respiratory depression [Unknown]
  - Disseminated aspergillosis [Fatal]
  - Acute kidney injury [Unknown]
  - Septic shock [Unknown]
